FAERS Safety Report 4831591-4 (Version None)
Quarter: 2005Q4

REPORT INFORMATION
  Report Type: 
  Country: None (occurrence: None)
  Receive Date: 20051116
  Receipt Date: 20051103
  Transmission Date: 20060501
  Serious: Yes (Hospitalization, Other)
  Sender: FDA-Public Use
  Company Number: 2005151449

PATIENT
  Age: 26 Year
  Sex: Female

DRUGS (1)
  1. DEPO-PROVERA [Suspect]
     Indication: DYSMENORRHOEA
     Dates: start: 20050211, end: 20050211

REACTIONS (8)
  - ALOPECIA [None]
  - ANAEMIA [None]
  - ANXIETY [None]
  - DEPRESSION [None]
  - HAEMORRHAGE [None]
  - MIGRAINE [None]
  - PANIC ATTACK [None]
  - SUICIDAL IDEATION [None]
